FAERS Safety Report 10441133 (Version 1)
Quarter: 2014Q3

REPORT INFORMATION
  Report Type: Spontaneous
  Country: US (occurrence: None)
  Receive Date: 20140908
  Receipt Date: 20140908
  Transmission Date: 20150326
  Serious: Yes (Hospitalization)
  Sender: FDA-Public Use
  Company Number: None

PATIENT
  Age: 65 Year
  Sex: Male
  Weight: 115.7 kg

DRUGS (2)
  1. SOFOSBUVIR [Suspect]
     Active Substance: SOFOSBUVIR
     Indication: HEPATITIS C
     Route: 048
     Dates: start: 20140815
  2. SIMEPREVIR [Suspect]
     Active Substance: SIMEPREVIR
     Indication: HEPATITIS C
     Route: 048
     Dates: start: 20140815

REACTIONS (7)
  - Pleural effusion [None]
  - Nausea [None]
  - Vomiting [None]
  - Chills [None]
  - Cardiac failure congestive [None]
  - Pyrexia [None]
  - Immunosuppression [None]

NARRATIVE: CASE EVENT DATE: 20140828
